FAERS Safety Report 5075490-4 (Version None)
Quarter: 2006Q3

REPORT INFORMATION
  Report Type: 
  Country: None (occurrence: None)
  Receive Date: 20060809
  Receipt Date: 20060609
  Transmission Date: 20061208
  Serious: Yes (Hospitalization)
  Sender: FDA-Public Use
  Company Number: PHEH2006US07632

PATIENT
  Age: 94 Year
  Sex: Female

DRUGS (1)
  1. ENABLEX [Suspect]
     Dates: end: 20060514

REACTIONS (6)
  - ABDOMINAL DISTENSION [None]
  - CONFUSIONAL STATE [None]
  - MENTAL IMPAIRMENT [None]
  - OXYGEN SATURATION DECREASED [None]
  - SMALL INTESTINAL OBSTRUCTION [None]
  - VOMITING [None]
